FAERS Safety Report 9296268 (Version 1)
Quarter: 2013Q2

REPORT INFORMATION
  Report Type: Spontaneous
  Country: US (occurrence: US)
  Receive Date: 20130517
  Receipt Date: 20130517
  Transmission Date: 20140414
  Serious: Yes (Other)
  Sender: FDA-Public Use
  Company Number: US-ASTRAZENECA-2013SE32620

PATIENT
  Sex: 0

DRUGS (2)
  1. BRILINTA [Suspect]
     Route: 048
  2. PLAVIX [Suspect]
     Route: 065

REACTIONS (1)
  - Thrombosis in device [Unknown]
